FAERS Safety Report 5422103-5 (Version None)
Quarter: 2007Q3

REPORT INFORMATION
  Report Type: 
  Country: None (occurrence: None)
  Receive Date: 20070820
  Receipt Date: 20070809
  Transmission Date: 20080115
  Serious: Yes (Death)
  Sender: FDA-Public Use
  Company Number: CHNY2007GB02695

PATIENT
  Age: 67 Year
  Sex: Female

DRUGS (3)
  1. IBUPROFEN [Suspect]
     Dosage: ORAL
     Route: 048
  2. ACETYLSALICYLIC ACID (NCH) ( ACETYLSALICYLIC ACID) UNKNOWN [Suspect]
     Dosage: ORAL
     Route: 048
  3. ASPIRIN [Suspect]
     Dosage: ORAL
     Route: 048

REACTIONS (5)
  - CARDIAC ARREST [None]
  - CONFUSIONAL STATE [None]
  - DEAFNESS [None]
  - HYPERVENTILATION [None]
  - MULTIPLE DRUG OVERDOSE [None]
